FAERS Safety Report 21155617 (Version 1)
Quarter: 2022Q3

REPORT INFORMATION
  Report Type: Spontaneous
  Country: US (occurrence: None)
  Receive Date: 20220729
  Receipt Date: 20220729
  Transmission Date: 20221027
  Serious: No
  Sender: FDA-Public Use
  Company Number: None

PATIENT
  Age: 76 Year
  Sex: Female

DRUGS (1)
  1. LENALIDOMIDE [Suspect]
     Active Substance: LENALIDOMIDE
     Dosage: 15MG DAILY ORAL?
     Route: 048
     Dates: start: 202206

REACTIONS (2)
  - Bronchitis [None]
  - Full blood count abnormal [None]

NARRATIVE: CASE EVENT DATE: 20220714
